FAERS Safety Report 20519147 (Version 3)
Quarter: 2025Q3

REPORT INFORMATION
  Report Type: Report from Study
  Country: US (occurrence: US)
  Receive Date: 20220225
  Receipt Date: 20250725
  Transmission Date: 20251021
  Serious: No
  Sender: KYOWA
  Company Number: US-KYOWAKIRIN-2022BKK002156

PATIENT

DRUGS (5)
  1. BUROSUMAB [Suspect]
     Active Substance: BUROSUMAB
     Indication: Hereditary hypophosphataemic rickets
     Dosage: 20 MG, 1X/2 WEEKS
     Route: 058
  2. BUROSUMAB [Suspect]
     Active Substance: BUROSUMAB
     Indication: Hereditary hypophosphataemic rickets
     Dosage: 10 MG, 1X/2 WEEKS
     Route: 065
     Dates: start: 20220121
  3. BUROSUMAB [Suspect]
     Active Substance: BUROSUMAB
     Indication: Bone disorder
     Dosage: 10 MG, 1X/2 WEEKS
     Route: 058
     Dates: start: 202201
  4. BUROSUMAB [Suspect]
     Active Substance: BUROSUMAB
     Indication: Hereditary hypophosphataemic rickets
     Dosage: 30 MG, 1X/2 WEEKS
     Route: 058
     Dates: start: 202201
  5. BUROSUMAB [Suspect]
     Active Substance: BUROSUMAB
     Indication: Bone disorder

REACTIONS (3)
  - Ear infection [Unknown]
  - Attention deficit hyperactivity disorder [Unknown]
  - Blood calcium decreased [Unknown]

NARRATIVE: CASE EVENT DATE: 20220101
